FAERS Safety Report 5313130-7 (Version None)
Quarter: 2007Q1

REPORT INFORMATION
  Report Type: 
  Country: None (occurrence: None)
  Receive Date: 20070201
  Receipt Date: 20061109
  Transmission Date: 20070707
  Serious: No
  Sender: FDA-Public Use
  Company Number: VNL_0291_2006

PATIENT
  Age: 67 Year
  Sex: Female
  Weight: 43.5453 kg

DRUGS (4)
  1. APOKYN [Suspect]
     Indication: PARKINSON'S DISEASE
     Dosage: VAR VARIABLE SC
     Route: 058
     Dates: start: 20040101
  2. CARBIDOPA AND LEVODOPA [Suspect]
     Indication: PARKINSON'S DISEASE
     Dosage: 1 TAB TID PO
     Route: 048
  3. STALEVO 100 [Concomitant]
  4. TIGAN [Concomitant]

REACTIONS (5)
  - ALOPECIA [None]
  - ARTHRALGIA [None]
  - DYSKINESIA [None]
  - MUSCLE SPASMS [None]
  - NAUSEA [None]
